FAERS Safety Report 6688540-6 (Version None)
Quarter: 2010Q2

REPORT INFORMATION
  Report Type: 
  Country: None (occurrence: None)
  Receive Date: 20100420
  Receipt Date: 20100226
  Transmission Date: 20101027
  Serious: Yes (Other)
  Sender: FDA-Public Use
  Company Number: B0648242A

PATIENT
  Sex: Male

DRUGS (2)
  1. ALLI [Suspect]
     Route: 065
  2. NEUROLEPTIC DRUGS [Suspect]
     Indication: DRUG USE FOR UNKNOWN INDICATION
     Route: 065

REACTIONS (3)
  - ADVERSE DRUG REACTION [None]
  - DRUG INTERACTION [None]
  - HALLUCINATION, AUDITORY [None]
